FAERS Safety Report 5925925-7 (Version None)
Quarter: 2008Q3

REPORT INFORMATION
  Report Type: 
  Country: None (occurrence: None)
  Receive Date: 20080923
  Receipt Date: 20070816
  Transmission Date: 20090109
  Serious: Yes (Other)
  Sender: FDA-Public Use
  Company Number: WAES 0708USA03333

PATIENT
  Age: 20 Year
  Sex: Male
  Weight: 80.7403 kg

DRUGS (4)
  1. VYTORIN [Suspect]
     Dosage: PO
     Route: 048
     Dates: start: 20070618, end: 20070813
  2. VYTORIN [Suspect]
     Dosage: 10-10 MG/DAILY/PO
     Route: 048
     Dates: start: 20070814
  3. BENZACLIN [Concomitant]
  4. KELP [Concomitant]

REACTIONS (6)
  - ACNE [None]
  - HEPATIC ENZYME INCREASED [None]
  - HYPOTHYROIDISM [None]
  - MIXED HYPERLIPIDAEMIA [None]
  - THYROID NEOPLASM [None]
  - WRONG TECHNIQUE IN DRUG USAGE PROCESS [None]
